FAERS Safety Report 15091315 (Version 1)
Quarter: 2018Q2

REPORT INFORMATION
  Report Type: Spontaneous
  Country: US (occurrence: US)
  Receive Date: 20180629
  Receipt Date: 20180629
  Transmission Date: 20180711
  Serious: No
  Sender: FDA-Public Use
  Company Number: US-AMGEN-USASP2015096788

PATIENT
  Age: 74 Year
  Sex: Female

DRUGS (1)
  1. PROLIA [Suspect]
     Active Substance: DENOSUMAB
     Indication: OSTEOPOROSIS
     Dosage: UNK
     Route: 065

REACTIONS (7)
  - Influenza like illness [Unknown]
  - Malaise [Unknown]
  - Oropharyngeal pain [Unknown]
  - Feeling abnormal [Unknown]
  - Heart rate increased [Not Recovered/Not Resolved]
  - Anxiety [Unknown]
  - Headache [Unknown]
